FAERS Safety Report 4746416-5 (Version None)
Quarter: 2005Q3

REPORT INFORMATION
  Report Type: 
  Country: None (occurrence: None)
  Receive Date: 20050815
  Receipt Date: 20050801
  Transmission Date: 20060218
  Serious: Yes (Death)
  Sender: FDA-Public Use
  Company Number: JP_050506483

PATIENT
  Age: 70 Year
  Sex: Male
  Weight: 61 kg

DRUGS (4)
  1. GEMZAR [Suspect]
     Indication: LUNG ADENOCARCINOMA STAGE III
     Dosage: 1500 MG OTHER
     Dates: start: 20050418, end: 20050418
  2. KYTRIL [Concomitant]
  3. MAXIPIME (CEFEPIME HDYROCHLORIDE) [Concomitant]
  4. MUCODYNE (CARBOCISTEINE) [Concomitant]

REACTIONS (5)
  - CARDIOMEGALY [None]
  - DISSEMINATED INTRAVASCULAR COAGULATION [None]
  - LUNG DISORDER [None]
  - PULMONARY CONGESTION [None]
  - PULMONARY OEDEMA [None]
